FAERS Safety Report 18326257 (Version 2)
Quarter: 2020Q3

REPORT INFORMATION
  Report Type: Spontaneous
  Country: US (occurrence: US)
  Receive Date: 20200929
  Receipt Date: 20200929
  Transmission Date: 20201103
  Serious: Yes (Hospitalization)
  Sender: FDA-Public Use
  Company Number: US-CELGENEUS-USA-20200906158

PATIENT
  Sex: Female

DRUGS (2)
  1. REVLIMID [Suspect]
     Active Substance: LENALIDOMIDE
     Indication: MYELODYSPLASTIC SYNDROME UNCLASSIFIABLE
     Dosage: 10 MILLIGRAM
     Route: 048
     Dates: start: 20181017
  2. REVLIMID [Suspect]
     Active Substance: LENALIDOMIDE
     Indication: RHEUMATOID ARTHRITIS
     Dosage: 5 MILLIGRAM
     Route: 048
     Dates: start: 201903

REACTIONS (5)
  - Blood count abnormal [Unknown]
  - Vomiting [Unknown]
  - Illness [Recovered/Resolved]
  - Sepsis [Recovered/Resolved]
  - Feeding disorder [Unknown]
